FAERS Safety Report 25196145 (Version 2)
Quarter: 2025Q2

REPORT INFORMATION
  Report Type: Report from Study
  Country: US (occurrence: US)
  Receive Date: 20250415
  Receipt Date: 20250521
  Transmission Date: 20250716
  Serious: No
  Sender: ABBVIE
  Company Number: US-ABBVIE-6221861

PATIENT
  Sex: Female

DRUGS (1)
  1. RINVOQ [Suspect]
     Active Substance: UPADACITINIB
     Indication: Product used for unknown indication
     Route: 048

REACTIONS (4)
  - Lung disorder [Unknown]
  - Discomfort [Unknown]
  - Pain [Unknown]
  - Productive cough [Unknown]
